FAERS Safety Report 25800545 (Version 3)
Quarter: 2025Q4

REPORT INFORMATION
  Report Type: Spontaneous
  Country: CA (occurrence: CA)
  Receive Date: 20250915
  Receipt Date: 20251104
  Transmission Date: 20260117
  Serious: Yes (Other)
  Sender: CELLTRION
  Company Number: CA-CELLTRION INC.-2025CA023490

PATIENT

DRUGS (4)
  1. INFLIXIMAB [Suspect]
     Active Substance: INFLIXIMAB
     Indication: Colitis ulcerative
     Dosage: MAINTENANCE - 600 MG - EVERY 8 WEEKS
     Route: 042
     Dates: start: 20250711
  2. INFLIXIMAB [Suspect]
     Active Substance: INFLIXIMAB
     Dosage: MAINTENANCE - 600 MG - EVERY 8 WEEKS
     Route: 042
     Dates: start: 20250904
  3. INFLIXIMAB [Suspect]
     Active Substance: INFLIXIMAB
     Dosage: NEW DOSE FREQUENCY - 600 MG IV (10 MG/KG) EVERY 6 WEEKS
     Route: 042
     Dates: start: 20251030
  4. DUPIXENT [Suspect]
     Active Substance: DUPILUMAB
     Indication: Dermatitis atopic
     Dosage: UNK

REACTIONS (9)
  - Rectal haemorrhage [Unknown]
  - Frequent bowel movements [Unknown]
  - Abdominal discomfort [Unknown]
  - Gastrointestinal mucosa hyperaemia [Unknown]
  - Faecal calprotectin increased [Unknown]
  - Dermatitis atopic [Unknown]
  - Off label use [Unknown]
  - Intentional product use issue [Unknown]
  - Treatment delayed [Recovered/Resolved]

NARRATIVE: CASE EVENT DATE: 20250711
